FAERS Safety Report 9393246 (Version 3)
Quarter: 2014Q1

REPORT INFORMATION
  Report Type: Report from Study
  Country: US (occurrence: US)
  Receive Date: 20130710
  Receipt Date: 20140128
  Transmission Date: 20141002
  Serious: Yes (Hospitalization, Other)
  Sender: FDA-Public Use
  Company Number: US-US-EMD SERONO, INC.-7222733

PATIENT
  Age: 71 Year
  Sex: Male
  Weight: 63 kg

DRUGS (4)
  1. REBIF [Suspect]
     Indication: SECONDARY PROGRESSIVE MULTIPLE SCLEROSIS
     Route: 058
     Dates: start: 20070104
  2. REBIF [Suspect]
     Route: 058
     Dates: start: 201312
  3. BACLOFEN [Concomitant]
     Indication: PRODUCT USED FOR UNKNOWN INDICATION
     Dates: start: 201305
  4. NAMENDA [Concomitant]
     Indication: PRODUCT USED FOR UNKNOWN INDICATION
     Dates: start: 201106

REACTIONS (6)
  - Nephrolithiasis [Not Recovered/Not Resolved]
  - Urinary tract infection [Recovering/Resolving]
  - Decubitus ulcer [Recovering/Resolving]
  - Abdominal discomfort [Not Recovered/Not Resolved]
  - Weight decreased [Not Recovered/Not Resolved]
  - Multiple sclerosis [Not Recovered/Not Resolved]
